FAERS Safety Report 19481746 (Version 1)
Quarter: 2021Q2

REPORT INFORMATION
  Report Type: Spontaneous
  Country: US (occurrence: US)
  Receive Date: 20210630
  Receipt Date: 20210630
  Transmission Date: 20210717
  Serious: No
  Sender: FDA-Public Use
  Company Number: None

PATIENT
  Age: 27 Year
  Sex: Female
  Weight: 106.3 kg

DRUGS (4)
  1. DIPHENHYDRAMINE 50MG [Concomitant]
     Active Substance: DIPHENHYDRAMINE
  2. ACETAMINOPHEN 1000MG [Concomitant]
  3. OCRELIZUMAB. [Suspect]
     Active Substance: OCRELIZUMAB
     Indication: MULTIPLE SCLEROSIS
     Dosage: ?          OTHER FREQUENCY:EVERY 6 MONTHS;?
     Route: 042
     Dates: start: 20191213
  4. METHYLPREDNISOLONE 125MG [Concomitant]

REACTIONS (2)
  - Throat irritation [None]
  - Infusion related reaction [None]

NARRATIVE: CASE EVENT DATE: 20210629
